FAERS Safety Report 13456697 (Version 4)
Quarter: 2018Q3

REPORT INFORMATION
  Report Type: Spontaneous
  Country: IT (occurrence: IT)
  Receive Date: 20170418
  Receipt Date: 20180807
  Transmission Date: 20181010
  Serious: Yes (Death, Other)
  Sender: FDA-Public Use
  Company Number: IT-009507513-1704ITA005080

PATIENT
  Age: 44 Year
  Sex: Male

DRUGS (4)
  1. POSACONAZOLE [Suspect]
     Active Substance: POSACONAZOLE
     Indication: ANTIFUNGAL PROPHYLAXIS
     Dosage: 600 MG, DAILY
     Route: 048
  2. DOXORUBICIN HYDROCHLORIDE. [Concomitant]
     Active Substance: DOXORUBICIN HYDROCHLORIDE
     Indication: CHEMOTHERAPY
     Dosage: 50 MG/MQ FOR 3 DAYS
  3. CYTARABINE. [Concomitant]
     Active Substance: CYTARABINE
     Indication: CHEMOTHERAPY
     Dosage: 100 MG/MQ FOR 7 DAYS
  4. CYTARABINE. [Concomitant]
     Active Substance: CYTARABINE
     Dosage: 100 MG/MQ FOR 7 DAYS

REACTIONS (4)
  - Pathogen resistance [Unknown]
  - Fusarium infection [Fatal]
  - Treatment failure [Unknown]
  - Pneumonia [Unknown]
